FAERS Safety Report 18664637 (Version 4)
Quarter: 2021Q2

REPORT INFORMATION
  Report Type: Spontaneous
  Country: GB (occurrence: GB)
  Receive Date: 20201225
  Receipt Date: 20210625
  Transmission Date: 20210717
  Serious: Yes (Other)
  Sender: FDA-Public Use
  Company Number: GB-BIOVITRUM-2020GB7897

PATIENT
  Age: 62 Year
  Sex: Female

DRUGS (52)
  1. IBUPROFEN. [Concomitant]
     Active Substance: IBUPROFEN
     Dates: start: 2018
  2. PARACETAMOL [Concomitant]
     Active Substance: ACETAMINOPHEN
     Dates: start: 2013
  3. LANSOPRAZOLE. [Concomitant]
     Active Substance: LANSOPRAZOLE
     Dates: start: 2019
  4. VITAMIN C [Concomitant]
     Active Substance: ASCORBIC ACID
     Dates: start: 2014
  5. TYR COOLER [Concomitant]
     Dates: start: 2019
  6. ADCAL D3 [Concomitant]
     Active Substance: CALCIUM CARBONATE\CHOLECALCIFEROL
     Dates: start: 2015
  7. IBUPROFEN. [Concomitant]
     Active Substance: IBUPROFEN
     Dates: start: 2017
  8. PARACETAMOL [Concomitant]
     Active Substance: ACETAMINOPHEN
     Dates: start: 2014
  9. PARACETAMOL [Concomitant]
     Active Substance: ACETAMINOPHEN
     Dates: start: 2017
  10. LANSOPRAZOLE. [Concomitant]
     Active Substance: LANSOPRAZOLE
     Dates: start: 2020
  11. FISH OIL [Concomitant]
     Active Substance: FISH OIL
     Dates: start: 2016
  12. GLUCOSAMINE WITH CHONDROITIN [Concomitant]
     Dates: start: 2016
  13. ORFADIN [Suspect]
     Active Substance: NITISINONE
     Indication: ALKAPTONURIA
     Dates: start: 2012
  14. ADCAL D3 [Concomitant]
     Active Substance: CALCIUM CARBONATE\CHOLECALCIFEROL
     Dates: start: 2012
  15. ADCAL D3 [Concomitant]
     Active Substance: CALCIUM CARBONATE\CHOLECALCIFEROL
     Dates: start: 2019
  16. IBUPROFEN. [Concomitant]
     Active Substance: IBUPROFEN
     Dates: start: 2016
  17. FISH OIL [Concomitant]
     Active Substance: FISH OIL
     Dates: start: 2015
  18. LORATADINE. [Concomitant]
     Active Substance: LORATADINE
     Dates: start: 2015
  19. TERIPARATIDE [Concomitant]
     Active Substance: TERIPARATIDE
     Dates: start: 2016
  20. FELODIPINE. [Concomitant]
     Active Substance: FELODIPINE
     Dates: start: 2018
  21. PARACETAMOL [Concomitant]
     Active Substance: ACETAMINOPHEN
     Dates: start: 2018
  22. PARACETAMOL [Concomitant]
     Active Substance: ACETAMINOPHEN
     Dates: start: 2019
  23. LANSOPRAZOLE. [Concomitant]
     Active Substance: LANSOPRAZOLE
     Dates: start: 2014
  24. LANSOPRAZOLE. [Concomitant]
     Active Substance: LANSOPRAZOLE
     Dates: start: 2017
  25. FISH OIL [Concomitant]
     Active Substance: FISH OIL
     Dosage: 1200
     Dates: start: 2014
  26. GLUCOSAMINE WITH CHONDROITIN [Concomitant]
     Dates: start: 2014
  27. AMITRIPTYLINE [Concomitant]
     Active Substance: AMITRIPTYLINE
     Dates: start: 2017
  28. DENOSUMAB [Concomitant]
     Active Substance: DENOSUMAB
     Dates: start: 2020
  29. ALENDRONIC ACID [Concomitant]
     Active Substance: ALENDRONIC ACID
     Dates: start: 2012
  30. ADCAL D3 [Concomitant]
     Active Substance: CALCIUM CARBONATE\CHOLECALCIFEROL
     Dosage: 1500MG/400IU
     Dates: start: 2013
  31. IBUPROFEN. [Concomitant]
     Active Substance: IBUPROFEN
     Dates: start: 2019
  32. AVAMYS [Concomitant]
     Active Substance: FLUTICASONE FUROATE
     Dates: start: 2014
  33. FELODIPINE. [Concomitant]
     Active Substance: FELODIPINE
     Dates: start: 2019
  34. ADCAL D3 [Concomitant]
     Active Substance: CALCIUM CARBONATE\CHOLECALCIFEROL
     Dates: start: 2014
  35. ADCAL D3 [Concomitant]
     Active Substance: CALCIUM CARBONATE\CHOLECALCIFEROL
     Dates: start: 2016
  36. COCODAMOL [Concomitant]
     Active Substance: ACETAMINOPHEN\CODEINE PHOSPHATE
     Dates: start: 2013
  37. COCODAMOL [Concomitant]
     Active Substance: ACETAMINOPHEN\CODEINE PHOSPHATE
     Dosage: AS NEEDED
     Dates: start: 2014
  38. TERIPARATIDE [Concomitant]
     Active Substance: TERIPARATIDE
     Dates: start: 2015
  39. MULTI VITAMIN [Concomitant]
     Active Substance: VITAMINS
     Dates: start: 2015
  40. FELODIPINE. [Concomitant]
     Active Substance: FELODIPINE
     Dates: start: 2017
  41. FELODIPINE. [Concomitant]
     Active Substance: FELODIPINE
     Dates: start: 2020
  42. ADCAL D3 [Concomitant]
     Active Substance: CALCIUM CARBONATE\CHOLECALCIFEROL
     Dates: start: 2017
  43. ADCAL D3 [Concomitant]
     Active Substance: CALCIUM CARBONATE\CHOLECALCIFEROL
     Dates: start: 2018
  44. ADCAL D3 [Concomitant]
     Active Substance: CALCIUM CARBONATE\CHOLECALCIFEROL
     Dates: start: 2020
  45. IBUPROFEN. [Concomitant]
     Active Substance: IBUPROFEN
     Dates: start: 2013
  46. IBUPROFEN. [Concomitant]
     Active Substance: IBUPROFEN
     Dates: start: 2014
  47. LANSOPRAZOLE. [Concomitant]
     Active Substance: LANSOPRAZOLE
     Dates: start: 2016
  48. LANSOPRAZOLE. [Concomitant]
     Active Substance: LANSOPRAZOLE
     Dates: start: 2018
  49. IBUPROFEN. [Concomitant]
     Active Substance: IBUPROFEN
     Dates: start: 2015
  50. IBUPROFEN. [Concomitant]
     Active Substance: IBUPROFEN
     Dosage: PRN
     Dates: start: 2020
  51. GLUCOSAMINE WITH CHONDROITIN [Concomitant]
     Dates: start: 2015
  52. FELODIPINE. [Concomitant]
     Active Substance: FELODIPINE
     Dates: start: 2016

REACTIONS (3)
  - Cataract [Not Recovered/Not Resolved]
  - Lenticular opacities [Not Recovered/Not Resolved]
  - Amino acid level increased [Not Recovered/Not Resolved]

NARRATIVE: CASE EVENT DATE: 2013
